FAERS Safety Report 9459241 (Version 2)
Quarter: 2014Q1

REPORT INFORMATION
  Report Type: Spontaneous
  Country: DE (occurrence: DE)
  Receive Date: 20130814
  Receipt Date: 20140226
  Transmission Date: 20141002
  Serious: Yes (Other)
  Sender: FDA-Public Use
  Company Number: DE-GE HEALTHCARE MEDICAL DIAGNOSTICS-VISP-PR-1308S-0765

PATIENT
  Age: 21 Year
  Sex: Female
  Weight: 84 kg

DRUGS (2)
  1. VISIPAQUE [Suspect]
     Indication: HEADACHE
     Route: 042
     Dates: start: 20130806, end: 20130806
  2. VISIPAQUE [Suspect]
     Indication: DIAGNOSTIC PROCEDURE

REACTIONS (2)
  - Rash [Recovered/Resolved]
  - Eye swelling [Recovered/Resolved]
